FAERS Safety Report 12929335 (Version 4)
Quarter: 2016Q4

REPORT INFORMATION
  Report Type: Spontaneous
  Country: US (occurrence: US)
  Receive Date: 20161110
  Receipt Date: 20161226
  Transmission Date: 20170207
  Serious: Yes (Death, Hospitalization, Other)
  Sender: FDA-Public Use
  Company Number: US-009507513-1611USA001746

PATIENT
  Age: 68 Year
  Sex: Female

DRUGS (2)
  1. PRINIVIL [Suspect]
     Active Substance: LISINOPRIL
     Dosage: UNK
  2. PRINIVIL [Suspect]
     Active Substance: LISINOPRIL
     Dosage: UNK
     Route: 048

REACTIONS (6)
  - Intestinal perforation [Unknown]
  - Encephalopathy [Unknown]
  - Acute kidney injury [Unknown]
  - Acute hepatic failure [Fatal]
  - Septic shock [Unknown]
  - Ileus [Unknown]
